FAERS Safety Report 9437587 (Version 1)
Quarter: 2013Q3

REPORT INFORMATION
  Report Type: Spontaneous
  Country: IT (occurrence: IT)
  Receive Date: 20130802
  Receipt Date: 20130802
  Transmission Date: 20140515
  Serious: Yes (Hospitalization)
  Sender: FDA-Public Use
  Company Number: IT-BAYER-2013-090789

PATIENT
  Age: 73 Year
  Sex: Male

DRUGS (2)
  1. CARDIOASPIRIN [Suspect]
     Indication: ISCHAEMIC HEART DISEASE PROPHYLAXIS
     Dosage: 100 MG, DAILY DOSE
     Route: 048
     Dates: start: 20120101
  2. COUMADIN [Suspect]
     Indication: CARDIAC DISORDER
     Dosage: 5 MG, DAILY DOSE
     Route: 048
     Dates: start: 20120101, end: 20130709

REACTIONS (2)
  - Haematuria [Recovering/Resolving]
  - Renal pain [Recovering/Resolving]
